FAERS Safety Report 4475071-7 (Version None)
Quarter: 2004Q4

REPORT INFORMATION
  Report Type: 
  Country: None (occurrence: None)
  Receive Date: 20041015
  Receipt Date: 20041006
  Transmission Date: 20050328
  Serious: Yes (Death)
  Sender: FDA-Public Use
  Company Number: US-JNJFOC-20041002226

PATIENT
  Sex: Female
  Weight: 67.59 kg

DRUGS (13)
  1. REMICADE [Suspect]
     Indication: RHEUMATOID ARTHRITIS
     Route: 042
  2. METHOTREXATE [Concomitant]
     Indication: RHEUMATOID ARTHRITIS
  3. FOLIC ACID [Concomitant]
  4. HUMULIN M [Concomitant]
     Dosage: BEDTIME DOSAGE
  5. HUMULIN 70/30 [Concomitant]
  6. HUMULIN 70/30 [Concomitant]
     Dosage: AM DOSAGE
  7. GLUCOPHAGE [Concomitant]
  8. GEMFIBROZIL [Concomitant]
  9. LANOXIN [Concomitant]
  10. METOPROTOL [Concomitant]
  11. VASOTEC [Concomitant]
  12. VICODIN [Concomitant]
  13. VICODIN [Concomitant]

REACTIONS (1)
  - CEREBROVASCULAR ACCIDENT [None]
